FAERS Safety Report 21890107 (Version 7)
Quarter: 2025Q4

REPORT INFORMATION
  Report Type: Spontaneous
  Country: US (occurrence: US)
  Receive Date: 20230120
  Receipt Date: 20251125
  Transmission Date: 20260117
  Serious: Yes (Other)
  Sender: PFIZER
  Company Number: US-PFIZER INC-PV202200095715

PATIENT
  Age: 68 Year
  Sex: Male

DRUGS (2)
  1. XELJANZ [Suspect]
     Active Substance: TOFACITINIB CITRATE
     Dosage: 5 MG
     Route: 048
  2. FOLIC ACID [Concomitant]
     Active Substance: FOLIC ACID
     Dosage: 0.4 MG

REACTIONS (5)
  - Cardiac failure [Unknown]
  - Blood cholesterol increased [Unknown]
  - Osteopenia [Unknown]
  - Hypotension [Unknown]
  - Hypoacusis [Unknown]
